FAERS Safety Report 15014078 (Version 1)
Quarter: 2018Q2

REPORT INFORMATION
  Report Type: Not Available
  Country: US (occurrence: US)
  Receive Date: 20180615
  Receipt Date: 20180615
  Transmission Date: 20180711
  Serious: No
  Sender: FDA-Public Use
  Company Number: US-NEUROCRINE BIOSCIENCES INC.-2018NBI01706

PATIENT
  Age: 54 Year
  Sex: Male

DRUGS (10)
  1. FLOMAX [Concomitant]
     Active Substance: TAMSULOSIN HYDROCHLORIDE
  2. INGREZZA [Suspect]
     Active Substance: VALBENAZINE
     Indication: TARDIVE DYSKINESIA
     Route: 048
     Dates: start: 20180104, end: 20180525
  3. LISINOPRIL. [Concomitant]
     Active Substance: LISINOPRIL
  4. ZYPREXA [Concomitant]
     Active Substance: OLANZAPINE
  5. DEPAKOTE [Concomitant]
     Active Substance: DIVALPROEX SODIUM
  6. INGREZZA [Suspect]
     Active Substance: VALBENAZINE
     Route: 048
     Dates: start: 20180526
  7. COGENTIN [Concomitant]
     Active Substance: BENZTROPINE MESYLATE
  8. LACTULOSE. [Concomitant]
     Active Substance: LACTULOSE
  9. CLOZAPINE. [Concomitant]
     Active Substance: CLOZAPINE
  10. LINZESS [Concomitant]
     Active Substance: LINACLOTIDE

REACTIONS (1)
  - Drooling [Unknown]

NARRATIVE: CASE EVENT DATE: 20180515
